FAERS Safety Report 7659405-8 (Version None)
Quarter: 2011Q3

REPORT INFORMATION
  Report Type: 
  Country: None (occurrence: None)
  Receive Date: 20110805
  Receipt Date: 20110725
  Transmission Date: 20111222
  Serious: Yes (Hospitalization)
  Sender: FDA-Public Use
  Company Number: NL-JNJFOC-20110602075

PATIENT
  Sex: Male
  Weight: 52.7 kg

DRUGS (10)
  1. INFLIXIMAB, RECOMBINANT [Suspect]
     Route: 042
     Dates: start: 20110209
  2. ADRENALIN IN OIL INJ [Concomitant]
  3. ANTIHISTAMINES [Concomitant]
  4. FOLIUMZUUR [Concomitant]
  5. METHOTREXATE [Concomitant]
  6. INFLIXIMAB, RECOMBINANT [Suspect]
     Indication: CROHN'S DISEASE
     Route: 042
     Dates: start: 20110223
  7. INFLIXIMAB, RECOMBINANT [Suspect]
     Route: 042
     Dates: start: 20110323
  8. STEROIDS NOS [Concomitant]
  9. HUMIRA [Concomitant]
     Indication: CROHN'S DISEASE
     Dates: start: 20101201, end: 20110202
  10. CALCIUM CARBONATE [Concomitant]

REACTIONS (1)
  - CROHN'S DISEASE [None]
